FAERS Safety Report 10005444 (Version 2)
Quarter: 2014Q2

REPORT INFORMATION
  Report Type: Report from Study
  Country: AU (occurrence: AU)
  Receive Date: 20140312
  Receipt Date: 20140407
  Transmission Date: 20141212
  Serious: Yes (Other)
  Sender: FDA-Public Use
  Company Number: PHHO2014AU003462

PATIENT
  Age: 59 Year
  Sex: Male
  Weight: 75 kg

DRUGS (3)
  1. FTY 720 [Suspect]
     Indication: MULTIPLE SCLEROSIS
     Dosage: 0.5 MG, QD
     Route: 048
     Dates: start: 20110325
  2. STILNOX [Concomitant]
     Indication: INSOMNIA
     Dosage: 10 MG, PRN NOCTE
     Dates: start: 20080915
  3. VITAMIN D [Concomitant]
     Indication: SUPPLEMENTATION THERAPY
     Dosage: 16 MG, QD
     Route: 048
     Dates: start: 20130701

REACTIONS (1)
  - Basal cell carcinoma [Recovered/Resolved]
